FAERS Safety Report 20670436 (Version 2)
Quarter: 2022Q2

REPORT INFORMATION
  Report Type: Spontaneous
  Country: US (occurrence: None)
  Receive Date: 20220404
  Receipt Date: 20220525
  Transmission Date: 20220721
  Serious: No
  Sender: FDA-Public Use
  Company Number: 2022A133055

PATIENT
  Age: 73 Year
  Sex: Female
  Weight: 45.4 kg

DRUGS (3)
  1. SYMBICORT [Suspect]
     Active Substance: BUDESONIDE\FORMOTEROL FUMARATE DIHYDRATE
     Indication: Asthma
     Route: 055
     Dates: start: 2006
  2. SYMBICORT [Suspect]
     Active Substance: BUDESONIDE\FORMOTEROL FUMARATE DIHYDRATE
     Indication: Asthma
     Dosage: 3 PUFFS OF SYMBICORT
     Route: 055
     Dates: start: 202202
  3. BUDESONIDE\FORMOTEROL [Concomitant]
     Active Substance: BUDESONIDE\FORMOTEROL
     Dosage: UNKNOWN POSOLOGY UNKNOWN
     Route: 055
     Dates: start: 2021, end: 2021

REACTIONS (12)
  - Sleep disorder [Unknown]
  - Chronic obstructive pulmonary disease [Unknown]
  - Amnesia [Unknown]
  - Asthma [Unknown]
  - Oxygen consumption [Unknown]
  - Drug ineffective [Unknown]
  - Product use issue [Unknown]
  - Wrong technique in product usage process [Unknown]
  - Product dispensing error [Unknown]
  - Device use issue [Unknown]
  - Incorrect dose administered by device [Unknown]
  - Device malfunction [Unknown]

NARRATIVE: CASE EVENT DATE: 20200101
